FAERS Safety Report 19282692 (Version 1)
Quarter: 2021Q2

REPORT INFORMATION
  Report Type: Spontaneous
  Country: US (occurrence: US)
  Receive Date: 20210520
  Receipt Date: 20210520
  Transmission Date: 20210717
  Serious: Yes (Death)
  Sender: FDA-Public Use
  Company Number: None

PATIENT
  Age: 26 Year
  Sex: Male
  Weight: 87.75 kg

DRUGS (1)
  1. KRATOM (MITRAGYNA SPECIOSA) [Suspect]
     Active Substance: HERBALS\MITRAGYNINE
     Dosage: ?          QUANTITY:250 CAPSULE(S);?
     Route: 048

REACTIONS (5)
  - Insomnia [None]
  - Overdose [None]
  - Seizure [None]
  - Choking [None]
  - Decreased appetite [None]

NARRATIVE: CASE EVENT DATE: 20210421
